FAERS Safety Report 6088881-X (Version None)
Quarter: 2009Q1

REPORT INFORMATION
  Report Type: 
  Country: None (occurrence: None)
  Receive Date: 20090224
  Receipt Date: 20090213
  Transmission Date: 20090719
  Serious: Yes (Hospitalization, Other)
  Sender: FDA-Public Use
  Company Number: DE-AMGEN-QUU333604

PATIENT
  Sex: Male
  Weight: 83.5 kg

DRUGS (17)
  1. ARANESP [Suspect]
     Indication: DIALYSIS
     Route: 042
     Dates: start: 20070502
  2. ASS ^CT-ARZNEIMITTEL^ [Concomitant]
  3. PLAVIX [Concomitant]
     Route: 048
  4. DIGITOXIN [Concomitant]
  5. CARVEDILOL [Concomitant]
     Route: 048
  6. RAMIPRIL [Concomitant]
     Route: 048
  7. ATACAND [Concomitant]
  8. PRAVASTATIN SODIUM [Concomitant]
     Route: 048
  9. DEKRISTOL [Concomitant]
     Route: 048
  10. FOSRENOL [Concomitant]
     Route: 048
  11. DREISAVIT N [Concomitant]
  12. TRENTAL [Concomitant]
  13. RADEDORM [Concomitant]
  14. LIMPTAR [Concomitant]
  15. SPIRIVA [Concomitant]
  16. CLARITHROMYCIN [Concomitant]
  17. CEFPODOXIME PROXETIL [Concomitant]

REACTIONS (20)
  - AORTIC VALVE INCOMPETENCE [None]
  - BARRETT'S OESOPHAGUS [None]
  - CORONARY ARTERY DISEASE [None]
  - CORONARY ARTERY STENOSIS [None]
  - ENDOCARDITIS [None]
  - HAEMODIALYSIS [None]
  - HAEMOGLOBIN DECREASED [None]
  - HAEMORRHAGE [None]
  - HYPERKALAEMIA [None]
  - HYPERLIPIDAEMIA [None]
  - HYPERPARATHYROIDISM SECONDARY [None]
  - HYPERTENSIVE HEART DISEASE [None]
  - MICROSCOPIC POLYANGIITIS [None]
  - MITRAL VALVE INCOMPETENCE [None]
  - NEPHROGENIC ANAEMIA [None]
  - PNEUMONIA [None]
  - PULMONARY OEDEMA [None]
  - RENAL HYPERTENSION [None]
  - TRANSPLANT REJECTION [None]
  - URETHRAL STRICTURE POSTOPERATIVE [None]
